FAERS Safety Report 9449114 (Version 3)
Quarter: 2013Q4

REPORT INFORMATION
  Report Type: Report from Study
  Country: JP (occurrence: JP)
  Receive Date: 20130808
  Receipt Date: 20131204
  Transmission Date: 20140711
  Serious: Yes (Hospitalization, Other)
  Sender: FDA-Public Use
  Company Number: JP-GILEAD-2013-0081033

PATIENT
  Age: 64 Year
  Sex: Female
  Weight: 37 kg

DRUGS (32)
  1. AMBRISENTAN [Suspect]
     Indication: SCLERODERMA ASSOCIATED DIGITAL ULCER
     Dosage: 2.5MG PER DAY
     Route: 048
     Dates: start: 20130610, end: 20130627
  2. AZULFIDINE EN [Concomitant]
     Route: 048
     Dates: end: 20130707
  3. METALCAPTASE                       /00062501/ [Concomitant]
     Route: 048
  4. GLAKAY [Concomitant]
     Route: 048
     Dates: end: 20130707
  5. HYPEN                              /00340101/ [Concomitant]
     Route: 048
  6. OMEPRAL                            /00661201/ [Concomitant]
     Route: 048
  7. ANPLAG [Concomitant]
     Indication: SCLERODERMA ASSOCIATED DIGITAL ULCER
     Route: 048
  8. ANPLAG [Concomitant]
     Route: 048
  9. ANPLAG [Concomitant]
     Route: 048
  10. SALIGREN [Concomitant]
     Route: 048
  11. SALIGREN [Concomitant]
     Route: 048
  12. SALIGREN [Concomitant]
     Route: 048
  13. ALESION [Concomitant]
     Route: 048
     Dates: end: 20130707
  14. ADEROXAL [Concomitant]
     Route: 048
  15. ADEROXAL [Concomitant]
     Route: 048
  16. ADEROXAL [Concomitant]
     Route: 048
  17. SELTOUCH [Concomitant]
     Route: 062
  18. SELTOUCH [Concomitant]
     Route: 062
  19. SELTOUCH [Concomitant]
     Route: 062
  20. SALIVEHT [Concomitant]
     Route: 055
  21. SALIVEHT [Concomitant]
     Route: 055
  22. SALIVEHT [Concomitant]
     Route: 055
  23. PROSTANDIN                         /00501501/ [Concomitant]
     Indication: SCLERODERMA ASSOCIATED DIGITAL ULCER
     Route: 061
  24. MUCOSOLVAN [Concomitant]
     Route: 048
  25. MUCOSOLVAN [Concomitant]
     Route: 048
  26. MUCOSOLVAN [Concomitant]
     Route: 048
  27. RESPLEN [Concomitant]
     Route: 048
  28. RESPLEN [Concomitant]
     Route: 048
  29. RESPLEN [Concomitant]
     Route: 048
  30. NERISONA [Concomitant]
     Route: 061
  31. NERISONA [Concomitant]
     Route: 061
  32. NERISONA [Concomitant]
     Route: 061

REACTIONS (3)
  - Pleural effusion [Recovered/Resolved]
  - Cardiac failure [Recovered/Resolved]
  - Fluid retention [Unknown]
